FAERS Safety Report 4317351-1 (Version None)
Quarter: 2004Q1

REPORT INFORMATION
  Report Type: 
  Country: None (occurrence: None)
  Receive Date: 20040305
  Receipt Date: 20040116
  Transmission Date: 20041129
  Serious: No
  Sender: FDA-Public Use
  Company Number: US-SHR-03-016624

PATIENT
  Sex: Female

DRUGS (2)
  1. CAMPATH [Suspect]
     Indication: CHRONIC LYMPHOCYTIC LEUKAEMIA
     Dosage: 3/10/30 MG,
     Dates: start: 20031008, end: 20031022
  2. ZOLOFT [Concomitant]

REACTIONS (2)
  - DEPRESSION [None]
  - HYPOTENSION [None]
